FAERS Safety Report 5049474-6 (Version None)
Quarter: 2006Q3

REPORT INFORMATION
  Report Type: 
  Country: None (occurrence: None)
  Receive Date: 20060711
  Receipt Date: 20060711
  Transmission Date: 20061208
  Serious: Yes (Other)
  Sender: FDA-Public Use
  Company Number: None

PATIENT
  Age: 77 Year
  Sex: Male
  Weight: 89.1 kg

DRUGS (1)
  1. ALENDRONATE SODIUM [Suspect]
     Indication: OSTEOPENIA
     Dosage: 70MG  ONCE A WEEK  PO
     Route: 048
     Dates: start: 20060502, end: 20060710

REACTIONS (3)
  - CONDITION AGGRAVATED [None]
  - DRUG INTOLERANCE [None]
  - DYSPNOEA [None]
